FAERS Safety Report 8396109-0 (Version None)
Quarter: 2012Q2

REPORT INFORMATION
  Report Type: 
  Country: None (occurrence: None)
  Receive Date: 20120530
  Receipt Date: 20120522
  Transmission Date: 20120825
  Serious: Yes (Hospitalization)
  Sender: FDA-Public Use
  Company Number: FR-ROCHE-1071034

PATIENT
  Age: 59 Year

DRUGS (2)
  1. XELODA [Suspect]
     Indication: RECTAL CANCER
  2. XELODA [Suspect]
     Dosage: 8 TIME

REACTIONS (9)
  - HAEMATOTOXICITY [None]
  - HYPOCALCAEMIA [None]
  - PROCTOCOLITIS [None]
  - OVERDOSE [None]
  - PANCYTOPENIA [None]
  - HYPOKALAEMIA [None]
  - DIARRHOEA [None]
  - HYPOMAGNESAEMIA [None]
  - MUCOUS MEMBRANE DISORDER [None]
